FAERS Safety Report 10615725 (Version 1)
Quarter: 2014Q4

REPORT INFORMATION
  Report Type: Spontaneous
  Country: US (occurrence: None)
  Receive Date: 20141125
  Receipt Date: 20141125
  Transmission Date: 20150529
  Serious: Yes (Life-Threatening, Hospitalization)
  Sender: FDA-Public Use
  Company Number: None

PATIENT
  Age: 83 Year
  Sex: Female
  Weight: 52.5 kg

DRUGS (4)
  1. LISINOPRIL. [Suspect]
     Active Substance: LISINOPRIL
     Indication: HYPERTENSION
     Dosage: 1 PILL  QD  ORAL
     Route: 048
     Dates: start: 20140805, end: 20141124
  2. METFORMIN [Concomitant]
     Active Substance: METFORMIN HYDROCHLORIDE
  3. GLYBURIDE. [Concomitant]
     Active Substance: GLYBURIDE
  4. EXEMESTANE. [Concomitant]
     Active Substance: EXEMESTANE

REACTIONS (1)
  - Angioedema [None]

NARRATIVE: CASE EVENT DATE: 20141123
